FAERS Safety Report 26014819 (Version 2)
Quarter: 2025Q4

REPORT INFORMATION
  Report Type: Report from Study
  Country: US (occurrence: US)
  Receive Date: 20251108
  Receipt Date: 20251208
  Transmission Date: 20260118
  Serious: Yes (Hospitalization)
  Sender: NOVARTIS
  Company Number: US-002147023-NVSC2025US170677

PATIENT
  Age: 64 Year
  Sex: Male

DRUGS (19)
  1. ENTRESTO [Suspect]
     Active Substance: SACUBITRIL\VALSARTAN
     Indication: Cardiac failure
     Dosage: UNK
     Route: 065
     Dates: start: 20190611
  2. ENTRESTO [Suspect]
     Active Substance: SACUBITRIL\VALSARTAN
     Dosage: UNK ((49-51 MG) (TAKE 0.5 TABLETS BY MOUTH IN THE MORNING AND 0.5 TABLETS BEFORE BEDTIME))
     Route: 065
  3. LIORESAL [Concomitant]
     Active Substance: BACLOFEN
     Indication: Hiccups
     Dosage: 20 MG, Q8H (AS NEEDED)
     Route: 048
     Dates: start: 20250321, end: 20250324
  4. CYANOCOBALAMIN [Concomitant]
     Active Substance: CYANOCOBALAMIN
     Indication: Vitamin B12 deficiency
     Dosage: 1 DOSAGE FORM (1,000 MCG TOTAL)
     Route: 048
     Dates: start: 20250322, end: 20250421
  5. TYLENOL [Concomitant]
     Active Substance: ACETAMINOPHEN
     Indication: Pain
     Dosage: 1 DOSAGE FORM, Q6H
     Route: 065
     Dates: end: 20250924
  6. ALUMINUM HYDROXIDE\DIMETHICONE\MAGNESIUM HYDROXIDE [Concomitant]
     Active Substance: ALUMINUM HYDROXIDE\DIMETHICONE\MAGNESIUM HYDROXIDE
     Indication: Product used for unknown indication
     Dosage: UNK (TOPICALLY 2 TIMES A DAY APPLY TO BUTTOCKS/COCCYX FOR SKIN)
     Route: 065
     Dates: end: 20250728
  7. ASPIRIN [Concomitant]
     Active Substance: ASPIRIN
     Indication: Product used for unknown indication
     Dosage: 1 DOSAGE FORM, QD
     Route: 048
  8. LIPITOR [Concomitant]
     Active Substance: ATORVASTATIN CALCIUM
     Indication: Product used for unknown indication
     Dosage: 80 MG, QD
     Route: 048
     Dates: start: 20200825
  9. FERROUS SULFATE [Concomitant]
     Active Substance: FERROUS SULFATE
     Indication: Product used for unknown indication
     Dosage: 1 DOSAGE FORM, QD
     Route: 048
     Dates: end: 20250818
  10. FLUOROMETHOLONE [Concomitant]
     Active Substance: FLUOROMETHOLONE
     Indication: Product used for unknown indication
     Dosage: 1 DOSAGE FORM, Q6H (BOTH EYES)
     Route: 065
     Dates: start: 20230814, end: 20250718
  11. FORTAMET [Concomitant]
     Active Substance: METFORMIN HYDROCHLORIDE
     Indication: Product used for unknown indication
     Dosage: 1 DOSAGE FORM, QD
     Route: 048
  12. LOPRESSOR [Concomitant]
     Active Substance: METOPROLOL TARTRATE
     Indication: Product used for unknown indication
     Dosage: 1 DOSAGE FORM (IN THE MORNING AND 1 TABLET (25 MG) BEFORE BED TIME)
     Route: 048
     Dates: start: 20240807, end: 20251110
  13. MEXITIL [Concomitant]
     Active Substance: MEXILETINE HYDROCHLORIDE
     Indication: Product used for unknown indication
     Dosage: 1 DOSAGE FORM, Q8H
     Route: 048
     Dates: end: 20251007
  14. PRILOSEC [Concomitant]
     Active Substance: OMEPRAZOLE MAGNESIUM
     Indication: Product used for unknown indication
     Dosage: 1 DOSAGE FORM, QD
     Route: 048
  15. BETADINE [Concomitant]
     Active Substance: POVIDONE-IODINE
     Indication: Deep tissue injury
     Dosage: UNK (APPLY 1 SWAB. TOPICALLY IN THE MORNING AND 1 SWAB. BEFORE BEDTIME)
     Route: 065
     Dates: end: 20250818
  16. XARELTO [Concomitant]
     Active Substance: RIVAROXABAN
     Indication: Product used for unknown indication
     Dosage: 1 DOSAGE FORM, QD
     Route: 048
     Dates: end: 20250924
  17. BETAPACE [Concomitant]
     Active Substance: SOTALOL HYDROCHLORIDE
     Indication: Product used for unknown indication
     Dosage: 1 DOSAGE FORM, BID
     Route: 048
     Dates: start: 20230816, end: 20250611
  18. ALDACTONE [Concomitant]
     Active Substance: SPIRONOLACTONE
     Indication: Product used for unknown indication
     Dosage: 1 DOSAGE FORM, QD
     Route: 065
  19. FLOMAX [Concomitant]
     Active Substance: TAMSULOSIN HYDROCHLORIDE
     Indication: Product used for unknown indication
     Dosage: 1 DOSAGE FORM, QD
     Route: 048
     Dates: start: 20191022, end: 20251110

REACTIONS (3)
  - Vertigo [Unknown]
  - Orthostatic hypotension [Unknown]
  - Dizziness [Unknown]

NARRATIVE: CASE EVENT DATE: 20250315
